FAERS Safety Report 6285330-3 (Version None)
Quarter: 2009Q3

REPORT INFORMATION
  Report Type: 
  Country: None (occurrence: None)
  Receive Date: 20090727
  Receipt Date: 20090722
  Transmission Date: 20100115
  Serious: Yes (Hospitalization)
  Sender: FDA-Public Use
  Company Number: US-KINGPHARMUSA00001-K200900872

PATIENT
  Sex: Male
  Weight: 74.83 kg

DRUGS (8)
  1. FLECTOR [Suspect]
     Indication: ARTHRALGIA
     Dosage: 1 PATCH, BID
     Route: 061
     Dates: end: 20090701
  2. NORVASC [Concomitant]
     Indication: HYPERTENSION
     Dosage: UNK
  3. TORSEMIDE [Concomitant]
     Indication: HYPERTENSION
     Dosage: UNK
  4. BENAZEPRIL HYDROCHLORIDE [Concomitant]
     Indication: HYPERTENSION
  5. FLOMAX [Concomitant]
     Indication: PROSTATOMEGALY
  6. COLCHICINE [Concomitant]
     Indication: GOUT
  7. CALCITRIOL [Concomitant]
     Indication: VITAMIN D
  8. INSULIN [Concomitant]
     Indication: DIABETES MELLITUS

REACTIONS (2)
  - LOCALISED INFECTION [None]
  - SKIN INJURY [None]
